FAERS Safety Report 15874948 (Version 2)
Quarter: 2022Q1

REPORT INFORMATION
  Report Type: Other
  Country: US (occurrence: US)
  Receive Date: 20190126
  Receipt Date: 20220123
  Transmission Date: 20220423
  Serious: No
  Sender: FDA-Public Use
  Company Number: US-ACORDA-ACO_153760_2018

PATIENT
  Sex: Female

DRUGS (1)
  1. AMPYRA [Suspect]
     Active Substance: DALFAMPRIDINE
     Indication: Product used for unknown indication
     Dosage: 10 MG, BID; EVERY 12 HOURS
     Route: 065
     Dates: start: 20120823

REACTIONS (3)
  - Drug effect less than expected [Unknown]
  - Asthenia [Unknown]
  - Gait disturbance [Unknown]
